FAERS Safety Report 6685825-4 (Version None)
Quarter: 2010Q2

REPORT INFORMATION
  Report Type: 
  Country: None (occurrence: None)
  Receive Date: 20100419
  Receipt Date: 20100408
  Transmission Date: 20101027
  Serious: Yes (Hospitalization)
  Sender: FDA-Public Use
  Company Number: US-JNJFOC-20100205699

PATIENT
  Sex: Female
  Weight: 86.18 kg

DRUGS (4)
  1. ORTHO EVRA [Suspect]
     Indication: CONTRACEPTION
     Route: 062
  2. PAIN MEDICATION [Concomitant]
     Route: 048
  3. PRILOSEC [Concomitant]
     Indication: DYSPEPSIA
     Route: 048
  4. PHENERGAN [Concomitant]
     Indication: VOMITING
     Route: 048

REACTIONS (2)
  - PANCREATITIS CHRONIC [None]
  - WEIGHT DECREASED [None]
